FAERS Safety Report 9731723 (Version 1)
Quarter: 2013Q4

REPORT INFORMATION
  Report Type: Spontaneous
  Country: CA (occurrence: CA)
  Receive Date: 20131205
  Receipt Date: 20131205
  Transmission Date: 20140711
  Serious: Yes (Other)
  Sender: FDA-Public Use
  Company Number: CA-ASTRAZENECA-2013SE87395

PATIENT
  Age: 800 Month
  Sex: Female

DRUGS (1)
  1. FASLODEX [Suspect]
     Indication: BREAST CANCER FEMALE
     Dosage: 2X5ML, EVERY 28 DAYS
     Route: 042
     Dates: start: 201308

REACTIONS (3)
  - Blood creatine phosphokinase increased [Unknown]
  - Blood test abnormal [Unknown]
  - Palpitations [Unknown]
